FAERS Safety Report 23874309 (Version 2)
Quarter: 2024Q2

REPORT INFORMATION
  Report Type: Spontaneous
  Country: CN (occurrence: CN)
  Receive Date: 20240520
  Receipt Date: 20240522
  Transmission Date: 20240716
  Serious: Yes (Other)
  Sender: FDA-Public Use
  Company Number: CN-PFIZER INC-PV202400065095

PATIENT
  Age: 49 Year
  Sex: Male
  Weight: 60 kg

DRUGS (6)
  1. TYGACIL [Suspect]
     Active Substance: TIGECYCLINE
     Indication: Anti-infective therapy
     Dosage: 75 MG, 2X/DAY
     Route: 041
     Dates: start: 20240327, end: 20240409
  2. TYGACIL [Suspect]
     Active Substance: TIGECYCLINE
     Dosage: 150 MG, 1X/DAY
     Route: 041
     Dates: start: 20240327, end: 20240327
  3. TYGACIL [Suspect]
     Active Substance: TIGECYCLINE
     Dosage: 75 MG, 2X/DAY
     Route: 041
     Dates: start: 20240327, end: 20240409
  4. TYGACIL [Suspect]
     Active Substance: TIGECYCLINE
     Dosage: 75 MG, 2X/DAY
     Route: 041
     Dates: start: 20240411, end: 20240419
  5. TYGACIL [Suspect]
     Active Substance: TIGECYCLINE
     Dosage: 150 MG, 1X/DAY
     Route: 041
     Dates: start: 20240411, end: 20240411
  6. TYGACIL [Suspect]
     Active Substance: TIGECYCLINE
     Dosage: 75 MG, 2X/DAY
     Route: 041
     Dates: start: 20240411, end: 20240419

REACTIONS (1)
  - Lipase increased [Recovering/Resolving]

NARRATIVE: CASE EVENT DATE: 20240418
